FAERS Safety Report 8930198 (Version 1)
Quarter: 2012Q4

REPORT INFORMATION
  Report Type: 
  Country: FR (occurrence: FR)
  Receive Date: 20121128
  Receipt Date: 20121128
  Transmission Date: 20130627
  Serious: Yes (Hospitalization)
  Sender: FDA-Public Use
  Company Number: FR-B.I. PHARMACEUTICALS,INC./RIDGEFIELD-2012-FF-01382FF

PATIENT
  Age: 85 None
  Sex: Female
  Weight: 56 kg

DRUGS (7)
  1. PRADAXA [Suspect]
     Indication: ATRIAL FIBRILLATION
     Dosage: 220 mg
     Route: 048
     Dates: start: 201208, end: 20120927
  2. CORDARONE [Concomitant]
     Indication: ATRIAL FIBRILLATION
     Dates: start: 201206
  3. BISOPROLOL [Concomitant]
     Dates: start: 201204
  4. APROVEL [Concomitant]
     Dosage: 150/12.5
  5. TAHOR [Concomitant]
  6. METFORMINE [Concomitant]
     Dosage: 1700 NR
  7. AMAREL [Concomitant]
     Dosage: 3 g

REACTIONS (4)
  - Iron deficiency anaemia [Recovered/Resolved]
  - Microcytic anaemia [Recovered/Resolved]
  - Haemoglobin decreased [Recovered/Resolved]
  - Haemorrhoidal haemorrhage [Recovered/Resolved]
